FAERS Safety Report 8716500 (Version 2)
Quarter: 2013Q2

REPORT INFORMATION
  Report Type: Spontaneous
  Country: US (occurrence: US)
  Receive Date: 20120810
  Receipt Date: 20130529
  Transmission Date: 20140414
  Serious: No
  Sender: FDA-Public Use
  Company Number: US-009507513-1208USA002846

PATIENT
  Age: 60 Year
  Sex: Male

DRUGS (7)
  1. SINGULAIR [Suspect]
     Indication: HYPERSENSITIVITY
     Dosage: UNK
     Route: 048
     Dates: end: 20120715
  2. SINGULAIR [Suspect]
     Indication: ASTHMA
  3. ZETIA [Concomitant]
     Route: 048
  4. WARFARIN [Concomitant]
  5. ATENOLOL [Concomitant]
  6. LISINOPRIL [Concomitant]
     Indication: HYPERSENSITIVITY
  7. OMEPRAZOLE [Concomitant]
     Indication: ASTHMA

REACTIONS (1)
  - Platelet count decreased [Not Recovered/Not Resolved]
